FAERS Safety Report 8432216-1 (Version None)
Quarter: 2012Q2

REPORT INFORMATION
  Report Type: 
  Country: None (occurrence: None)
  Receive Date: 20120613
  Receipt Date: 20120601
  Transmission Date: 20120825
  Serious: Yes (Hospitalization, Other)
  Sender: FDA-Public Use
  Company Number: US-BRISTOL-MYERS SQUIBB COMPANY-16659179

PATIENT
  Age: 84 Year
  Sex: Male
  Weight: 83 kg

DRUGS (13)
  1. SYMBICORT [Concomitant]
     Indication: CHRONIC OBSTRUCTIVE PULMONARY DISEASE
     Dosage: ROUTE:IH,INHALATION, AEROSOL
     Route: 055
  2. OXYGEN [Concomitant]
     Indication: CHRONIC OBSTRUCTIVE PULMONARY DISEASE
     Dosage: ROUTE:IN
  3. OMEPRAZOLE [Concomitant]
     Indication: FLATULENCE
     Route: 048
  4. LASIX [Concomitant]
     Indication: JOINT SWELLING
     Route: 048
  5. IRON [Suspect]
     Indication: MEDICAL DIET
     Route: 048
  6. FLAXSEED [Concomitant]
     Indication: CONSTIPATION
     Route: 048
  7. VENTOLIN [Concomitant]
     Indication: CHRONIC OBSTRUCTIVE PULMONARY DISEASE
     Dosage: ROUTE:IH
  8. ALBUTEROL [Concomitant]
     Indication: CHRONIC OBSTRUCTIVE PULMONARY DISEASE
     Dosage: ROUTE:IH
  9. SIMVASTATIN [Concomitant]
     Indication: BLOOD CHOLESTEROL INCREASED
     Route: 048
  10. BENADRYL [Concomitant]
     Indication: SEASONAL ALLERGY
     Route: 048
  11. PRADAXA [Suspect]
     Indication: ATRIAL FIBRILLATION
     Dosage: 1 CAPSULE
     Route: 048
     Dates: start: 20110314, end: 20120124
  12. COUMADIN [Suspect]
     Indication: ATRIAL FIBRILLATION
     Route: 048
     Dates: start: 20110801
  13. VITAMIN B-12 [Concomitant]
     Indication: MEDICAL DIET
     Route: 048

REACTIONS (6)
  - UPPER GASTROINTESTINAL HAEMORRHAGE [None]
  - GASTRITIS [None]
  - ASTHENIA [None]
  - HAEMORRHAGE [None]
  - GASTRIC ULCER [None]
  - ABNORMAL FAECES [None]
